FAERS Safety Report 15977654 (Version 1)
Quarter: 2019Q1

REPORT INFORMATION
  Report Type: Report from Study
  Country: CA (occurrence: CA)
  Receive Date: 20190218
  Receipt Date: 20190218
  Transmission Date: 20190418
  Serious: Yes (Other)
  Sender: FDA-Public Use
  Company Number: PHHY2019CA008620

PATIENT
  Age: 56 Year
  Sex: Male

DRUGS (4)
  1. JAKAVI [Suspect]
     Active Substance: RUXOLITINIB
     Dosage: 10 MG, BID
     Route: 048
  2. EXJADE [Suspect]
     Active Substance: DEFERASIROX
     Indication: IRON OVERLOAD
     Dosage: UNK
     Route: 048
     Dates: start: 2017
  3. JAKAVI [Suspect]
     Active Substance: RUXOLITINIB
     Indication: MYELOFIBROSIS
     Dosage: 15 MG, BID
     Route: 048
     Dates: start: 2017
  4. JAKAVI [Suspect]
     Active Substance: RUXOLITINIB
     Dosage: 15 MG, BID
     Route: 048

REACTIONS (10)
  - White blood cell count increased [Unknown]
  - Red blood cell count decreased [Unknown]
  - Monocyte count increased [Unknown]
  - Platelet count increased [Unknown]
  - Neutrophil count increased [Unknown]
  - Lymphocyte count increased [Unknown]
  - Eosinophil count increased [Unknown]
  - Haemoglobin decreased [Unknown]
  - Granulocyte count increased [Unknown]
  - Malaise [Unknown]

NARRATIVE: CASE EVENT DATE: 20180824
